FAERS Safety Report 8874686 (Version 1)
Quarter: 2012Q4

REPORT INFORMATION
  Report Type: Report from Study
  Country: DE (occurrence: DE)
  Receive Date: 20121031
  Receipt Date: 20121031
  Transmission Date: 20130627
  Serious: Yes (Other)
  Sender: FDA-Public Use
  Company Number: DE-INCYTE CORPORATION-2012IN002126

PATIENT
  Age: 83 Year
  Sex: Male

DRUGS (2)
  1. INC424 [Suspect]
     Indication: MYELOFIBROSIS
     Dosage: 15 mg, bid
     Route: 048
  2. INC424 [Suspect]
     Dosage: 20 mg, bid
     Route: 048
     Dates: start: 201201

REACTIONS (1)
  - Aphasia [Unknown]
